FAERS Safety Report 14276451 (Version 3)
Quarter: 2022Q1

REPORT INFORMATION
  Report Type: Spontaneous
  Country: CA (occurrence: CA)
  Receive Date: 20171212
  Receipt Date: 20220307
  Transmission Date: 20220423
  Serious: Yes (Hospitalization, Other)
  Sender: FDA-Public Use
  Company Number: CA-AUROBINDO-AUR-APL-2017-45053

PATIENT
  Age: 92 Year
  Sex: Male

DRUGS (5)
  1. OLANZAPINE [Suspect]
     Active Substance: OLANZAPINE
     Indication: Major depression
     Dosage: 2.5 MILLIGRAM, RE-STARTED
     Route: 065
  2. OLANZAPINE [Suspect]
     Active Substance: OLANZAPINE
     Indication: Depression
     Dosage: 2.5 MILLIGRAM, ONCE A DAY
     Route: 065
  3. OLANZAPINE [Suspect]
     Active Substance: OLANZAPINE
     Dosage: 5 MILLIGRAM, ONCE A DAY
     Route: 065
  4. OLANZAPINE [Suspect]
     Active Substance: OLANZAPINE
     Dosage: 5 MILLIGRAM, INCREASED
     Route: 065
  5. SERTRALINE [Concomitant]
     Active Substance: SERTRALINE HYDROCHLORIDE
     Indication: Major depression
     Dosage: UNK
     Route: 065

REACTIONS (16)
  - Parkinsonism [Recovered/Resolved]
  - Cognitive disorder [Recovered/Resolved]
  - Drug hypersensitivity [Recovered/Resolved]
  - Orthostatic hypotension [Recovered/Resolved]
  - Abnormal dreams [Recovered/Resolved]
  - Dementia with Lewy bodies [Recovered/Resolved]
  - Hallucination [Recovered/Resolved]
  - Hallucination, visual [Recovered/Resolved]
  - Delusion [Recovered/Resolved]
  - Depression [Recovered/Resolved]
  - Gait disturbance [Recovered/Resolved]
  - Mobility decreased [Recovered/Resolved]
  - Muscular weakness [Recovered/Resolved]
  - Tremor [Recovered/Resolved]
  - Product use in unapproved indication [Recovered/Resolved]
  - Unmasking of previously unidentified disease [Recovering/Resolving]
